FAERS Safety Report 21116467 (Version 1)
Quarter: 2022Q3

REPORT INFORMATION
  Report Type: Other
  Country: NL (occurrence: NL)
  Receive Date: 20220722
  Receipt Date: 20220722
  Transmission Date: 20221027
  Serious: No
  Sender: FDA-Public Use
  Company Number: None

PATIENT
  Age: 34 Year
  Sex: Female
  Weight: 55 kg

DRUGS (1)
  1. LEVONORGESTREL [Suspect]
     Active Substance: LEVONORGESTREL
     Indication: Post coital contraception
     Dosage: 1.5 MILLIGRAM, UNKNOWN (1 STUK EENMALIG)
     Route: 065
     Dates: start: 20210602

REACTIONS (4)
  - Back pain [Not Recovered/Not Resolved]
  - Abdominal distension [Recovered/Resolved]
  - Chest discomfort [Recovered/Resolved]
  - Breast pain [Recovered/Resolved]

NARRATIVE: CASE EVENT DATE: 20210602
